FAERS Safety Report 8523734-6 (Version None)
Quarter: 2012Q3

REPORT INFORMATION
  Report Type: 
  Country: None (occurrence: None)
  Receive Date: 20120720
  Receipt Date: 20120716
  Transmission Date: 20120928
  Serious: Yes (Other)
  Sender: FDA-Public Use
  Company Number: US-TEVA-344192USA

PATIENT
  Sex: Male

DRUGS (1)
  1. CLARAVIS [Suspect]

REACTIONS (5)
  - SUICIDAL IDEATION [None]
  - SELF-INJURIOUS IDEATION [None]
  - MOOD SWINGS [None]
  - FEAR [None]
  - DEPRESSION [None]
